FAERS Safety Report 14999835 (Version 2)
Quarter: 2018Q2

REPORT INFORMATION
  Report Type: Spontaneous
  Country: BR (occurrence: BR)
  Receive Date: 20180612
  Receipt Date: 20180620
  Transmission Date: 20180711
  Serious: No
  Sender: FDA-Public Use
  Company Number: PHHY2018BR013872

PATIENT
  Sex: Female
  Weight: 66 kg

DRUGS (2)
  1. FORASEQ [Suspect]
     Active Substance: BUDESONIDE\FORMOTEROL FUMARATE
     Indication: MALAISE
  2. FORASEQ [Suspect]
     Active Substance: BUDESONIDE\FORMOTEROL FUMARATE
     Indication: DYSPNOEA
     Dosage: UNK
     Route: 055

REACTIONS (4)
  - Blood pressure increased [Recovering/Resolving]
  - Wrong technique in product usage process [Unknown]
  - Device difficult to use [Recovering/Resolving]
  - Device damage [Unknown]
